FAERS Safety Report 5507105-2 (Version None)
Quarter: 2007Q4

REPORT INFORMATION
  Report Type: 
  Country: None (occurrence: None)
  Receive Date: 20071105
  Receipt Date: 20071026
  Transmission Date: 20080405
  Serious: Yes (Hospitalization)
  Sender: FDA-Public Use
  Company Number: PT-ABBOTT-07P-130-0422254-00

PATIENT
  Age: 24 Month
  Sex: Male

DRUGS (1)
  1. DEPAKINE ORAL SOLUTION [Suspect]
     Indication: DRUG USE FOR UNKNOWN INDICATION
     Route: 048

REACTIONS (5)
  - ACCIDENTAL OVERDOSE [None]
  - DEPRESSED LEVEL OF CONSCIOUSNESS [None]
  - DRUG DISPENSING ERROR [None]
  - SOMNOLENCE [None]
  - UNRESPONSIVE TO STIMULI [None]
